FAERS Safety Report 9285485 (Version 1)
Quarter: 2013Q2

REPORT INFORMATION
  Report Type: Spontaneous
  Country: BR (occurrence: None)
  Receive Date: 20130507
  Receipt Date: 20130507
  Transmission Date: 20140414
  Serious: Yes (Other)
  Sender: FDA-Public Use
  Company Number: BR-1197997

PATIENT
  Age: 72 Year
  Sex: Male

DRUGS (2)
  1. TRAVATAN [Suspect]
     Indication: GLAUCOMA
     Route: 047
     Dates: start: 2007
  2. INSULIN [Concomitant]

REACTIONS (4)
  - Photophobia [None]
  - Drug ineffective [None]
  - Glaucoma [None]
  - Condition aggravated [None]
